FAERS Safety Report 16569645 (Version 1)
Quarter: 2019Q3

REPORT INFORMATION
  Report Type: Spontaneous
  Country: US (occurrence: US)
  Receive Date: 20190715
  Receipt Date: 20190715
  Transmission Date: 20191004
  Serious: No
  Sender: FDA-Public Use
  Company Number: US-BEH-2019104142

PATIENT
  Sex: Male

DRUGS (1)
  1. HIZENTRA [Suspect]
     Active Substance: HUMAN IMMUNOGLOBULIN G
     Indication: MITOCHONDRIAL ENZYME DEFICIENCY
     Dosage: UNK
     Route: 065
     Dates: start: 2008

REACTIONS (3)
  - No adverse event [Unknown]
  - Product supply issue [Unknown]
  - Product use in unapproved indication [Unknown]
